FAERS Safety Report 5687607-9 (Version None)
Quarter: 2008Q1

REPORT INFORMATION
  Report Type: 
  Country: None (occurrence: None)
  Receive Date: 20080328
  Receipt Date: 20080314
  Transmission Date: 20080703
  Serious: Yes (Hospitalization)
  Sender: FDA-Public Use
  Company Number: FR-BAYER-200814595GPV

PATIENT
  Age: 34 Year
  Sex: Female
  Weight: 55 kg

DRUGS (1)
  1. MIRENA [Suspect]
     Indication: DRUG USE FOR UNKNOWN INDICATION
     Route: 015
     Dates: start: 20061201

REACTIONS (4)
  - ABDOMINAL PAIN [None]
  - PELVIC PAIN [None]
  - PERITONEAL HAEMORRHAGE [None]
  - RUPTURED ECTOPIC PREGNANCY [None]
